FAERS Safety Report 11453038 (Version 1)
Quarter: 2015Q3

REPORT INFORMATION
  Report Type: Spontaneous
  Country: US (occurrence: US)
  Receive Date: 20150831
  Receipt Date: 20150831
  Transmission Date: 20151125
  Serious: No
  Sender: FDA-Public Use
  Company Number: US-ELI_LILLY_AND_COMPANY-US200910007242

PATIENT
  Age: 49 Year
  Sex: Female

DRUGS (1)
  1. CYMBALTA [Suspect]
     Active Substance: DULOXETINE HYDROCHLORIDE
     Indication: DEPRESSION
     Dosage: 30 MG, UNKNOWN
     Route: 048
     Dates: start: 200906

REACTIONS (10)
  - Fatigue [Unknown]
  - Arthralgia [Unknown]
  - Paraesthesia oral [Unknown]
  - Drug effect decreased [Unknown]
  - Feeling abnormal [Unknown]
  - Tension [Unknown]
  - Hypoaesthesia oral [Unknown]
  - Headache [Unknown]
  - Depression [Unknown]
  - Drug withdrawal syndrome [Unknown]

NARRATIVE: CASE EVENT DATE: 200910
